FAERS Safety Report 7554047-7 (Version None)
Quarter: 2011Q2

REPORT INFORMATION
  Report Type: 
  Country: None (occurrence: None)
  Receive Date: 20110614
  Receipt Date: 20110614
  Transmission Date: 20111010
  Serious: No
  Sender: FDA-Public Use
  Company Number: None

PATIENT
  Sex: Male

DRUGS (1)
  1. NEXAVAR [Suspect]
     Indication: HEPATIC NEOPLASM MALIGNANT
     Dosage: 400MG BID PO
     Route: 048
     Dates: start: 20110610, end: 20110613

REACTIONS (5)
  - HEADACHE [None]
  - NAUSEA [None]
  - PYREXIA [None]
  - BACK PAIN [None]
  - ABDOMINAL PAIN UPPER [None]
